FAERS Safety Report 16483099 (Version 1)
Quarter: 2019Q2

REPORT INFORMATION
  Report Type: Report from Study
  Country: US (occurrence: US)
  Receive Date: 20190627
  Receipt Date: 20190627
  Transmission Date: 20190711
  Serious: Yes (Other)
  Sender: FDA-Public Use
  Company Number: US-SA-2016SA041871

PATIENT
  Age: 48 Year
  Sex: Female
  Weight: 51 kg

DRUGS (5)
  1. KEPPRA [Concomitant]
     Active Substance: LEVETIRACETAM
     Dosage: 1000 MG,BID
  2. VANDETANIB. [Suspect]
     Active Substance: VANDETANIB
     Dosage: 100 MG,QD
     Route: 048
     Dates: start: 20070418
  3. VANDETANIB. [Suspect]
     Active Substance: VANDETANIB
     Indication: ANAPLASTIC ASTROCYTOMA
     Dosage: 300 MG,QD
     Route: 048
     Dates: start: 20060222
  4. SERZONE [Concomitant]
     Active Substance: NEFAZODONE HYDROCHLORIDE
     Dosage: 100 MG,QD
  5. LOPERAMIDE [Concomitant]
     Active Substance: LOPERAMIDE
     Indication: DIARRHOEA
     Dosage: UNK UNK,UNK
     Route: 048

REACTIONS (5)
  - Corneal disorder [Recovering/Resolving]
  - Glare [Recovering/Resolving]
  - Corneal opacity [Recovering/Resolving]
  - Cornea verticillata [Recovering/Resolving]
  - Lacrimation increased [Recovering/Resolving]

NARRATIVE: CASE EVENT DATE: 20070328
